FAERS Safety Report 9725577 (Version 1)
Quarter: 2013Q4

REPORT INFORMATION
  Report Type: Spontaneous
  Country: US (occurrence: None)
  Receive Date: 20131202
  Receipt Date: 20131202
  Transmission Date: 20140711
  Serious: Yes (Disabling)
  Sender: FDA-Public Use
  Company Number: None

PATIENT
  Age: 19 Year
  Sex: Female
  Weight: 56.7 kg

DRUGS (2)
  1. CITALOPRAM 40 MG [Suspect]
     Indication: DEPRESSION
     Dosage: 1 PILL, ONCE DAILY, TAKEN BY MOUTH
     Dates: start: 200005, end: 200011
  2. VENLAFAXINE [Suspect]
     Indication: DEPRESSION
     Dosage: 1-3 PILLS PER DAY, ONCE DAILY, TAKEN BY MOUTH
     Dates: start: 200204, end: 200412

REACTIONS (4)
  - Sexual dysfunction [None]
  - Libido decreased [None]
  - Libido decreased [None]
  - Anorgasmia [None]
